FAERS Safety Report 5692458-5 (Version None)
Quarter: 2008Q2

REPORT INFORMATION
  Report Type: 
  Country: None (occurrence: None)
  Receive Date: 20080402
  Receipt Date: 20071018
  Transmission Date: 20081010
  Serious: No
  Sender: FDA-Public Use
  Company Number: US-BAYER-US-2007-038952

PATIENT
  Sex: Female

DRUGS (1)
  1. LEUKINE [Suspect]
     Route: 058
     Dates: start: 20071010

REACTIONS (4)
  - HYPERSENSITIVITY [None]
  - LIP SWELLING [None]
  - SWELLING FACE [None]
  - URTICARIA [None]
